FAERS Safety Report 8069542-4 (Version None)
Quarter: 2012Q1

REPORT INFORMATION
  Report Type: 
  Country: None (occurrence: None)
  Receive Date: 20120125
  Receipt Date: 20120113
  Transmission Date: 20120608
  Serious: Yes (Hospitalization)
  Sender: FDA-Public Use
  Company Number: GB-JNJFOC-20120105405

PATIENT
  Sex: Female
  Weight: 52.5 kg

DRUGS (5)
  1. AZATHIOPRINE [Concomitant]
  2. METRONIDAZOLE [Concomitant]
  3. REMICADE [Suspect]
     Indication: CROHN'S DISEASE
     Route: 042
     Dates: start: 20081208, end: 20090807
  4. OMEPRAZOLE [Concomitant]
  5. HUMIRA [Concomitant]
     Dates: start: 20091002

REACTIONS (1)
  - CLOSTRIDIAL INFECTION [None]
